FAERS Safety Report 23129754 (Version 1)
Quarter: 2023Q4

REPORT INFORMATION
  Report Type: Spontaneous
  Country: CO (occurrence: CO)
  Receive Date: 20231031
  Receipt Date: 20231031
  Transmission Date: 20240109
  Serious: Yes (Other)
  Sender: FDA-Public Use
  Company Number: CO-BAYER-2023A154436

PATIENT
  Sex: Female

DRUGS (1)
  1. FINERENONE [Suspect]
     Active Substance: FINERENONE
     Dosage: 20 MG, QD
     Dates: start: 2023

REACTIONS (2)
  - Urinary tract infection [Unknown]
  - Product dose omission issue [None]

NARRATIVE: CASE EVENT DATE: 20231001
